FAERS Safety Report 9373816 (Version 2)
Quarter: 2013Q3

REPORT INFORMATION
  Report Type: Spontaneous
  Country: US (occurrence: US)
  Receive Date: 20130628
  Receipt Date: 20130829
  Transmission Date: 20140515
  Serious: No
  Sender: FDA-Public Use
  Company Number: US-ASTRAZENECA-2013SE47132

PATIENT
  Age: 61 Year
  Sex: Male
  Weight: 127 kg

DRUGS (3)
  1. SYMBICORT [Suspect]
     Indication: CHRONIC OBSTRUCTIVE PULMONARY DISEASE
     Dosage: 80/4.5, 2 INHALATIONS BID
     Route: 055
     Dates: start: 2011
  2. SYMBICORT [Suspect]
     Indication: CHRONIC OBSTRUCTIVE PULMONARY DISEASE
     Route: 055
  3. SPIRIVA [Concomitant]
     Indication: CHRONIC OBSTRUCTIVE PULMONARY DISEASE
     Dosage: ONE INHALATION, DAILY
     Route: 055
     Dates: start: 2011

REACTIONS (3)
  - Lung disorder [Recovered/Resolved]
  - Drug dose omission [Unknown]
  - Intentional drug misuse [Unknown]
